FAERS Safety Report 9015184 (Version 1)
Quarter: 2013Q1

REPORT INFORMATION
  Report Type: Spontaneous
  Country: US (occurrence: US)
  Receive Date: 20130116
  Receipt Date: 20130116
  Transmission Date: 20140127
  Serious: Yes (Other)
  Sender: FDA-Public Use
  Company Number: US-MERCK-1002USA01506

PATIENT
  Age: 65 Year
  Sex: Female

DRUGS (2)
  1. SINGULAIR [Suspect]
     Indication: RESPIRATORY DISORDER
     Dosage: 1-10 MG, HS
     Route: 048
  2. ZETIA [Suspect]
     Indication: BLOOD CHOLESTEROL INCREASED
     Dosage: 1-10 MG, HS
     Route: 048

REACTIONS (2)
  - Myalgia [Unknown]
  - Drug ineffective [Unknown]
